FAERS Safety Report 7207037-8 (Version None)
Quarter: 2011Q1

REPORT INFORMATION
  Report Type: 
  Country: None (occurrence: None)
  Receive Date: 20110103
  Receipt Date: 20101224
  Transmission Date: 20110831
  Serious: Yes (Hospitalization)
  Sender: FDA-Public Use
  Company Number: B0687505A

PATIENT
  Sex: Male
  Weight: 45 kg

DRUGS (5)
  1. THEO-DUR [Concomitant]
     Indication: EMPHYSEMA
     Dosage: 200MG PER DAY
     Route: 048
  2. SPIRIVA [Concomitant]
     Dosage: 5MCG PER DAY
     Route: 055
     Dates: start: 20100705
  3. SINGULAIR [Concomitant]
     Indication: ASTHMA
     Dosage: 10MG PER DAY
     Route: 048
  4. SERETIDE [Suspect]
     Indication: EMPHYSEMA
     Dosage: 500MCG PER DAY
     Route: 055
     Dates: start: 20091005
  5. SPIRIVA [Concomitant]
     Indication: EMPHYSEMA
     Dosage: 18MCG PER DAY
     Route: 055
     Dates: end: 20100704

REACTIONS (1)
  - BRONCHITIS [None]
